FAERS Safety Report 4297014-1 (Version None)
Quarter: 2004Q1

REPORT INFORMATION
  Report Type: 
  Country: None (occurrence: None)
  Receive Date: 20040217
  Receipt Date: 20040115
  Transmission Date: 20041129
  Serious: Yes (Hospitalization)
  Sender: FDA-Public Use
  Company Number: PHFR2004GB00608

PATIENT
  Age: 62 Year
  Sex: Male

DRUGS (4)
  1. CLOZARIL [Suspect]
     Indication: SCHIZOAFFECTIVE DISORDER
     Route: 048
     Dates: start: 20031118, end: 20040117
  2. DEPAKOTE [Concomitant]
     Dosage: 1250MG/DAY
     Route: 048
  3. CLOPIDOGREL BISULFATE [Concomitant]
     Dosage: 75MG/DAY
     Route: 048
  4. DIAZEPAM [Concomitant]
     Dosage: 2 MG, BID
     Route: 048

REACTIONS (12)
  - ALANINE AMINOTRANSFERASE INCREASED [None]
  - BLOOD CREATININE INCREASED [None]
  - BLOOD ELECTROLYTES ABNORMAL [None]
  - BLOOD UREA [None]
  - C-REACTIVE PROTEIN INCREASED [None]
  - CIRCULATORY COLLAPSE [None]
  - EOSINOPHIL COUNT INCREASED [None]
  - HAEMOGLOBIN DECREASED [None]
  - INFECTION [None]
  - LIVER FUNCTION TEST ABNORMAL [None]
  - MALAISE [None]
  - NEPHRITIS INTERSTITIAL [None]
